FAERS Safety Report 23501495 (Version 2)
Quarter: 2024Q4

REPORT INFORMATION
  Report Type: Spontaneous
  Country: JP (occurrence: JP)
  Receive Date: 20240208
  Receipt Date: 20241018
  Transmission Date: 20250114
  Serious: Yes (Other)
  Sender: ADVANZ PHARMA
  Company Number: JP-SAKK-2023SA370450AA

PATIENT

DRUGS (1)
  1. HYDROXYCHLOROQUINE SULFATE [Suspect]
     Active Substance: HYDROXYCHLOROQUINE SULFATE
     Indication: Systemic lupus erythematosus
     Dosage: 200 MG, QD (FILM-COATED TABLET)
     Route: 048
     Dates: start: 20190618, end: 20230130

REACTIONS (1)
  - Acquired pigmented retinopathy [Recovering/Resolving]

NARRATIVE: CASE EVENT DATE: 20230130
